FAERS Safety Report 7370197-2 (Version None)
Quarter: 2011Q1

REPORT INFORMATION
  Report Type: 
  Country: None (occurrence: None)
  Receive Date: 20110323
  Receipt Date: 20101130
  Transmission Date: 20110831
  Serious: No
  Sender: FDA-Public Use
  Company Number: US-ASTRAZENECA-2010SE56971

PATIENT
  Age: 62 Year
  Sex: Male

DRUGS (1)
  1. ZESTRIL [Suspect]
     Dosage: 20 - 30 MILLIGRAMS, DAILY.
     Route: 048

REACTIONS (1)
  - SEXUAL DYSFUNCTION [None]
